FAERS Safety Report 5700846-3 (Version None)
Quarter: 2008Q2

REPORT INFORMATION
  Report Type: 
  Country: None (occurrence: None)
  Receive Date: 20080407
  Receipt Date: 20080215
  Transmission Date: 20081010
  Serious: Yes (Hospitalization)
  Sender: FDA-Public Use
  Company Number: 2008AL001724

PATIENT
  Age: 65 Year
  Sex: Male

DRUGS (2)
  1. SPIRONOLACTONE [Suspect]
     Indication: CARDIAC FAILURE CONGESTIVE
  2. CLOZARIL [Concomitant]

REACTIONS (1)
  - FALL [None]
